FAERS Safety Report 10065125 (Version 1)
Quarter: 2014Q2

REPORT INFORMATION
  Report Type: Spontaneous
  Country: GB (occurrence: GB)
  Receive Date: 20140408
  Receipt Date: 20140408
  Transmission Date: 20141212
  Serious: Yes (Other)
  Sender: FDA-Public Use
  Company Number: PHHY2014GB038239

PATIENT
  Sex: Female

DRUGS (2)
  1. ANASTROZOLE [Suspect]
  2. OMEPRAZOLE [Concomitant]

REACTIONS (4)
  - Abdominal pain [Unknown]
  - Flushing [Unknown]
  - Reflux gastritis [Unknown]
  - Product substitution issue [Unknown]
